FAERS Safety Report 7725253-3 (Version None)
Quarter: 2011Q3

REPORT INFORMATION
  Report Type: 
  Country: None (occurrence: None)
  Receive Date: 20110902
  Receipt Date: 20110822
  Transmission Date: 20111222
  Serious: Yes (Hospitalization)
  Sender: FDA-Public Use
  Company Number: US-BIOGENIDEC-2010BI030083

PATIENT
  Age: 45 Year
  Sex: Female

DRUGS (2)
  1. TYSABRI [Suspect]
     Indication: MULTIPLE SCLEROSIS
     Route: 042
     Dates: start: 20090602, end: 20100915
  2. AVONEX [Concomitant]
     Indication: MULTIPLE SCLEROSIS
     Dates: start: 19990201

REACTIONS (11)
  - COMPLEX PARTIAL SEIZURES [None]
  - VOMITING [None]
  - CATHETER PLACEMENT [None]
  - APHASIA [None]
  - URINARY TRACT INFECTION [None]
  - MEMORY IMPAIRMENT [None]
  - CENTRAL NERVOUS SYSTEM LESION [None]
  - MENTAL STATUS CHANGES [None]
  - GRAND MAL CONVULSION [None]
  - NAUSEA [None]
  - SEPSIS [None]
